FAERS Safety Report 8228933-9 (Version None)
Quarter: 2012Q1

REPORT INFORMATION
  Report Type: 
  Country: None (occurrence: None)
  Receive Date: 20120322
  Receipt Date: 20120313
  Transmission Date: 20120608
  Serious: Yes (Other)
  Sender: FDA-Public Use
  Company Number: US-JNJFOC-20120307437

PATIENT
  Age: 72 Year
  Sex: Female
  Weight: 75.75 kg

DRUGS (1)
  1. XARELTO [Suspect]
     Indication: KNEE ARTHROPLASTY
     Route: 048
     Dates: start: 20120123, end: 20120206

REACTIONS (1)
  - THROMBOSIS [None]
